FAERS Safety Report 4943456-8 (Version None)
Quarter: 2006Q1

REPORT INFORMATION
  Report Type: 
  Country: None (occurrence: None)
  Receive Date: 20060309
  Receipt Date: 20060224
  Transmission Date: 20060701
  Serious: Yes (Hospitalization, Disabling, Other)
  Sender: FDA-Public Use
  Company Number: 2006028537

PATIENT
  Sex: Male

DRUGS (5)
  1. VIAGRA [Suspect]
     Indication: ERECTILE DYSFUNCTION
     Dosage: (25 MG)
  2. PAXIL [Suspect]
     Indication: AGITATION
     Dates: start: 20041101
  3. SODIUM (SODIUM) [Suspect]
     Indication: ILL-DEFINED DISORDER
  4. ANTIHYPERTENSIVES (ANTIHYPERTENSIVES) [Concomitant]
  5. NOVOLIN 70/30 (INSULIN IHUMAN, INSULIN HUMAN INJECTION, ISOPHANE) [Concomitant]

REACTIONS (17)
  - ARTERIAL HAEMORRHAGE [None]
  - ARTHRITIS [None]
  - BACTERIAL INFECTION [None]
  - BLOOD PRESSURE INCREASED [None]
  - CYANOPSIA [None]
  - DECUBITUS ULCER [None]
  - DRUG INEFFECTIVE [None]
  - EYE DISORDER [None]
  - FEAR [None]
  - IMPAIRED DRIVING ABILITY [None]
  - MOVEMENT DISORDER [None]
  - MUSCLE ATROPHY [None]
  - ORCHITIS [None]
  - RETINAL DETACHMENT [None]
  - VISION BLURRED [None]
  - WEIGHT INCREASED [None]
  - WHEELCHAIR USER [None]
